FAERS Safety Report 14632440 (Version 2)
Quarter: 2018Q1

REPORT INFORMATION
  Report Type: Spontaneous
  Country: JP (occurrence: JP)
  Receive Date: 20180313
  Receipt Date: 20180316
  Transmission Date: 20180509
  Serious: Yes (Hospitalization, Other)
  Sender: FDA-Public Use
  Company Number: JP-MYLANLABS-2018M1016130

PATIENT
  Age: 26 Year
  Sex: Female

DRUGS (3)
  1. PHENOBARBITAL. [Concomitant]
     Active Substance: PHENOBARBITAL
     Indication: FOCAL DYSCOGNITIVE SEIZURES
     Route: 065
  2. LEVETIRACETAM. [Suspect]
     Active Substance: LEVETIRACETAM
     Indication: EPILEPSY
     Route: 065
  3. CARBAMAZEPINE. [Concomitant]
     Active Substance: CARBAMAZEPINE
     Indication: FOCAL DYSCOGNITIVE SEIZURES
     Route: 048

REACTIONS (1)
  - Rhabdomyolysis [Recovered/Resolved]
